FAERS Safety Report 22936983 (Version 6)
Quarter: 2024Q1

REPORT INFORMATION
  Report Type: Spontaneous
  Country: US (occurrence: US)
  Receive Date: 20230912
  Receipt Date: 20240201
  Transmission Date: 20240410
  Serious: Yes (Hospitalization, Other)
  Sender: FDA-Public Use
  Company Number: US-BRISTOL-MYERS SQUIBB COMPANY-2023-126887

PATIENT
  Age: 72 Year
  Sex: Female

DRUGS (1)
  1. LENALIDOMIDE [Suspect]
     Active Substance: LENALIDOMIDE
     Indication: Plasma cell myeloma
     Dosage: FREQUENCY- TAKE 1 CAPSULE BY MOUTH EVERY OTHER DAY?TAKE 1 CAPSULE BY MOUTH ONCE DAILY ON DAYS 1-14 E
     Route: 048
     Dates: start: 20230810

REACTIONS (15)
  - Tooth abscess [Recovering/Resolving]
  - Off label use [Unknown]
  - Blood pressure fluctuation [Unknown]
  - Constipation [Unknown]
  - Dizziness [Unknown]
  - Oral infection [Recovering/Resolving]
  - Nausea [Not Recovered/Not Resolved]
  - Hypersomnia [Recovering/Resolving]
  - Dehydration [Recovering/Resolving]
  - Abdominal discomfort [Unknown]
  - Eating disorder [Unknown]
  - Decreased appetite [Unknown]
  - Diarrhoea [Not Recovered/Not Resolved]
  - Headache [Not Recovered/Not Resolved]
  - Influenza like illness [Not Recovered/Not Resolved]

NARRATIVE: CASE EVENT DATE: 20240125
